FAERS Safety Report 8580399-5 (Version None)
Quarter: 2012Q2

REPORT INFORMATION
  Report Type: 
  Country: None (occurrence: None)
  Receive Date: 20120423
  Receipt Date: 20091218
  Transmission Date: 20120825
  Serious: Yes (Hospitalization, Other)
  Sender: FDA-Public Use
  Company Number: PHHY2009US57147

PATIENT
  Age: 70 Year
  Sex: Female

DRUGS (8)
  1. EXJADE [Suspect]
     Indication: MYELODYSPLASTIC SYNDROME
     Dosage: 1000 MG/DAY, ORAL
     Route: 048
     Dates: start: 20090921
  2. AVELOX [Concomitant]
  3. REVLIMID [Concomitant]
  4. EXTRA STRENGTH TYLENOL [Concomitant]
  5. CALCIUM [Concomitant]
  6. ASPIRIN [Concomitant]
  7. VICODIN [Concomitant]
  8. ULTRAM [Concomitant]

REACTIONS (2)
  - HERNIA [None]
  - HERNIA REPAIR [None]
